FAERS Safety Report 8756371 (Version 1)
Quarter: 2012Q4

REPORT INFORMATION
  Report Type: 
  Country: JP (occurrence: JP)
  Receive Date: 20120828
  Receipt Date: 20120828
  Transmission Date: 20130627
  Serious: Yes (Other)
  Sender: FDA-Public Use
  Company Number: JP-ACCORD-014535

PATIENT

DRUGS (1)
  1. TACROLIMUS [Suspect]
     Indication: DRUG USE FOR UNKNOWN INDICATION

REACTIONS (2)
  - Scleroderma renal crisis [Unknown]
  - Posterior reversible encephalopathy syndrome [Unknown]
